FAERS Safety Report 10756569 (Version 5)
Quarter: 2015Q3

REPORT INFORMATION
  Report Type: Report from Study
  Country: US (occurrence: US)
  Receive Date: 20150202
  Receipt Date: 20150826
  Transmission Date: 20151125
  Serious: Yes (Other)
  Sender: FDA-Public Use
  Company Number: PHEH2015US001764

PATIENT
  Sex: Female
  Weight: 81.19 kg

DRUGS (7)
  1. LEVETIRACETAM. [Concomitant]
     Active Substance: LEVETIRACETAM
     Indication: PRODUCT USED FOR UNKNOWN INDICATION
     Dosage: 500 MG, UNK
     Route: 065
  2. OXYCODONE [Concomitant]
     Active Substance: OXYCODONE
     Indication: PRODUCT USED FOR UNKNOWN INDICATION
     Dosage: 3.25 MG, UNK
     Route: 065
  3. GILENYA [Suspect]
     Active Substance: FINGOLIMOD HYDROCHLORIDE
     Indication: MULTIPLE SCLEROSIS
     Dosage: 0.5 MG, QD
     Route: 048
     Dates: start: 201411
  4. GABAPENTIN. [Concomitant]
     Active Substance: GABAPENTIN
     Indication: PRODUCT USED FOR UNKNOWN INDICATION
     Dosage: 300 MG, UNK
     Route: 065
  5. XANAX [Concomitant]
     Active Substance: ALPRAZOLAM
     Indication: PRODUCT USED FOR UNKNOWN INDICATION
     Route: 065
  6. MODAFINIL. [Concomitant]
     Active Substance: MODAFINIL
     Indication: PRODUCT USED FOR UNKNOWN INDICATION
     Route: 065
  7. BACLOFEN. [Concomitant]
     Active Substance: BACLOFEN
     Indication: PRODUCT USED FOR UNKNOWN INDICATION
     Dosage: 10 MG, UNK
     Route: 065

REACTIONS (22)
  - Proctalgia [Not Recovered/Not Resolved]
  - Headache [Unknown]
  - Coordination abnormal [Unknown]
  - Disorientation [Unknown]
  - Back pain [Not Recovered/Not Resolved]
  - Muscle spasms [Unknown]
  - Eye colour change [Unknown]
  - Mood swings [Unknown]
  - Anxiety [Unknown]
  - Incontinence [Not Recovered/Not Resolved]
  - Confusional state [Unknown]
  - Insomnia [Unknown]
  - Fatigue [Unknown]
  - Blindness [Unknown]
  - Seizure [Unknown]
  - Uveitis [Unknown]
  - Feeling abnormal [Unknown]
  - Hypoaesthesia [Unknown]
  - Malaise [Unknown]
  - Hepatic enzyme increased [Unknown]
  - Blood pressure increased [Not Recovered/Not Resolved]
  - Migraine [Not Recovered/Not Resolved]
